FAERS Safety Report 4810795-0 (Version None)
Quarter: 2005Q4

REPORT INFORMATION
  Report Type: 
  Country: None (occurrence: None)
  Receive Date: 20051024
  Receipt Date: 20051011
  Transmission Date: 20060501
  Serious: No
  Sender: FDA-Public Use
  Company Number: 2004020066

PATIENT
  Age: 50 Year
  Sex: Male
  Weight: 122.4712 kg

DRUGS (6)
  1. ROGAINE [Suspect]
     Indication: ALOPECIA
     Dosage: {1 ML TWICE DAILY, TOPICAL
     Route: 061
     Dates: start: 20030101, end: 20040301
  2. PHENELZINE SULFATE (PHENELZINE SULFATE0 [Concomitant]
  3. CLONAZEPAM [Concomitant]
  4. ACETYLSALICYLIC ACID 9ACETYLSALICYLIC ACID0 [Concomitant]
  5. ASCORBIC ACID [Concomitant]
  6. TOCOPHEROL (TOCOPHEROL) [Concomitant]

REACTIONS (2)
  - DRUG EFFECT DECREASED [None]
  - MEDICATION RESIDUE [None]
